FAERS Safety Report 12508595 (Version 5)
Quarter: 2016Q3

REPORT INFORMATION
  Report Type: Report from Study
  Country: DE (occurrence: DE)
  Receive Date: 20160629
  Receipt Date: 20160906
  Transmission Date: 20161109
  Serious: Yes (Other)
  Sender: FDA-Public Use
  Company Number: DE-UCBSA-2016015846

PATIENT
  Sex: Female
  Weight: 105 kg

DRUGS (6)
  1. LISKANTIN [Concomitant]
     Active Substance: PRIMIDONE
     Indication: EPILEPSY
     Dosage: 500 MG, 2X/DAY (BID)
     Route: 048
     Dates: start: 201310
  2. BRIVARACETAM [Suspect]
     Active Substance: BRIVARACETAM
     Indication: EPILEPSY
     Dosage: 50 MG DOSE AND 100 MG, DAILY DOSE 150 MG, ONCE DAILY (QD)
     Route: 048
     Dates: start: 20160323, end: 20160425
  3. ZENTROPIL [Concomitant]
     Active Substance: PHENYTOIN
     Indication: EPILEPSY
     Dosage: 250 MG, 2X/DAY (BID)
     Route: 048
     Dates: start: 20130726
  4. PROPRA [Concomitant]
     Indication: TACHYCARDIA
     Dosage: 10 MG, ONCE DAILY (QD)
     Route: 048
     Dates: start: 201201
  5. VOTUBIA [Concomitant]
     Active Substance: EVEROLIMUS
     Indication: EPILEPSY
     Dosage: 25 MG, ONCE DAILY (QD)
     Route: 048
     Dates: start: 201310
  6. CITALOPRAM [Concomitant]
     Active Substance: CITALOPRAM HYDROBROMIDE
     Indication: DEPRESSION
     Dosage: 20 MG, 2X/DAY (BID)
     Route: 048
     Dates: start: 201408

REACTIONS (4)
  - Fatigue [Recovered/Resolved]
  - Seizure [Recovered/Resolved]
  - Mood altered [Not Recovered/Not Resolved]
  - Condition aggravated [Recovered/Resolved]

NARRATIVE: CASE EVENT DATE: 2016
